FAERS Safety Report 5469768-X (Version None)
Quarter: 2007Q3

REPORT INFORMATION
  Report Type: 
  Country: None (occurrence: None)
  Receive Date: 20070927
  Receipt Date: 20070508
  Transmission Date: 20080115
  Serious: No
  Sender: FDA-Public Use
  Company Number: US-AMGEN-KDL223723

PATIENT
  Sex: Female

DRUGS (3)
  1. NEUPOGEN [Suspect]
     Indication: NEUTROPENIA
     Dates: start: 20031201
  2. FLOVENT [Concomitant]
  3. PSEUDOEPHEDRINE HYDROCHLORIDE [Concomitant]

REACTIONS (1)
  - INJECTION SITE PAIN [None]
